FAERS Safety Report 20057140 (Version 2)
Quarter: 2021Q4

REPORT INFORMATION
  Report Type: Report from Study
  Country: JP (occurrence: JP)
  Receive Date: 20211111
  Receipt Date: 20211223
  Transmission Date: 20220303
  Serious: Yes (Hospitalization, Other)
  Sender: FDA-Public Use
  Company Number: JP-ViiV Healthcare Limited-BA20032850001

PATIENT
  Age: 43 Year
  Sex: Male

DRUGS (15)
  1. LAMIVUDINE [Suspect]
     Active Substance: LAMIVUDINE
     Indication: Acquired immunodeficiency syndrome
     Route: 048
     Dates: start: 20010627, end: 20030331
  2. LAMIVUDINE [Suspect]
     Active Substance: LAMIVUDINE
     Dosage: 150 MG, BID
     Route: 048
     Dates: start: 20030401, end: 20040803
  3. LAMIVUDINE [Suspect]
     Active Substance: LAMIVUDINE
     Dosage: 300 MG, QD
     Route: 048
     Dates: start: 20040804, end: 20050920
  4. EPZICOM [Suspect]
     Active Substance: ABACAVIR SULFATE\LAMIVUDINE
     Indication: HIV infection
     Dosage: 1 DF, 1D
     Route: 048
     Dates: start: 20140611
  5. TIVICAY [Suspect]
     Active Substance: DOLUTEGRAVIR SODIUM
     Indication: HIV infection
     Dosage: 50 MG, 1D
     Route: 048
     Dates: start: 20150527
  6. ZERIT [Suspect]
     Active Substance: STAVUDINE
     Indication: Acquired immunodeficiency syndrome
     Dosage: 60 MG, 1D
     Route: 048
     Dates: start: 20010627, end: 20040803
  7. EFAVIRENZ [Suspect]
     Active Substance: EFAVIRENZ
     Indication: Acquired immunodeficiency syndrome
     Dosage: 600 MG, 1D
     Route: 048
     Dates: start: 20010627, end: 20120724
  8. EDURANT [Suspect]
     Active Substance: RILPIVIRINE HYDROCHLORIDE
     Indication: HIV infection
     Dosage: 25 MG, 1D
     Route: 048
     Dates: start: 20120725, end: 20150526
  9. GANCICLOVIR [Concomitant]
     Active Substance: GANCICLOVIR
     Indication: Cytomegalovirus chorioretinitis
     Dosage: 1000 MG, TID
     Dates: start: 20010622, end: 20020430
  10. SULFAMETHOXAZOLE\TRIMETHOPRIM [Concomitant]
     Active Substance: SULFAMETHOXAZOLE\TRIMETHOPRIM
     Indication: Antifungal prophylaxis
     Dosage: 3 DF, *3W
     Dates: start: 20020401, end: 20020903
  11. VIREAD [Concomitant]
     Active Substance: TENOFOVIR DISOPROXIL FUMARATE
     Indication: Acquired immunodeficiency syndrome
     Dosage: 300 MG, UNK
     Dates: start: 20040804, end: 20050920
  12. ZOLPIDEM TARTRATE [Concomitant]
     Active Substance: ZOLPIDEM TARTRATE
     Indication: Insomnia
     Dosage: 5 MG, QD
     Dates: end: 20160510
  13. BROTIZOLAM [Concomitant]
     Active Substance: BROTIZOLAM
     Indication: Insomnia
     Dosage: 0.25 MG, PRN
     Dates: start: 20160511, end: 20171106
  14. BROTIZOLAM [Concomitant]
     Active Substance: BROTIZOLAM
     Dosage: UNK
     Dates: start: 20180404
  15. FLUNITRAZEPAM [Concomitant]
     Active Substance: FLUNITRAZEPAM
     Indication: Insomnia
     Dosage: UNK
     Dates: start: 20171107

REACTIONS (8)
  - Lipoatrophy [Recovered/Resolved with Sequelae]
  - Blood uric acid increased [Recovered/Resolved]
  - Hyperlipidaemia [Recovered/Resolved]
  - Gastrooesophageal reflux disease [Recovering/Resolving]
  - Hyperuricaemia [Recovered/Resolved]
  - Hypertension [Not Recovered/Not Resolved]
  - Cataract [Recovering/Resolving]
  - Otitis media [Recovering/Resolving]

NARRATIVE: CASE EVENT DATE: 20020605
